FAERS Safety Report 14363036 (Version 1)
Quarter: 2018Q1

REPORT INFORMATION
  Report Type: Report from Study
  Country: US (occurrence: US)
  Receive Date: 20180108
  Receipt Date: 20180108
  Transmission Date: 20180509
  Serious: Yes (Death, Hospitalization, Other)
  Sender: FDA-Public Use
  Company Number: US-TORRENT-00005452

PATIENT
  Age: 68 Year
  Sex: Male

DRUGS (2)
  1. AMITRIPTYLINE [Suspect]
     Active Substance: AMITRIPTYLINE
     Indication: PRODUCT USED FOR UNKNOWN INDICATION
     Route: 048
  2. ZOLPIDEM [Suspect]
     Active Substance: ZOLPIDEM\ZOLPIDEM TARTRATE
     Indication: PRODUCT USED FOR UNKNOWN INDICATION
     Route: 048

REACTIONS (9)
  - Completed suicide [Fatal]
  - Loss of consciousness [Unknown]
  - Hypotension [Unknown]
  - Brain oedema [Unknown]
  - Cardio-respiratory arrest [Fatal]
  - Pneumonia [Fatal]
  - Ventricular fibrillation [Unknown]
  - Acidosis [Recovered/Resolved]
  - Toxicity to various agents [Fatal]
